FAERS Safety Report 8987157 (Version 2)
Quarter: 2013Q1

REPORT INFORMATION
  Report Type: Report from Study
  Country: CZ (occurrence: CZ)
  Receive Date: 20121227
  Receipt Date: 20130208
  Transmission Date: 20140127
  Serious: Yes (Life-Threatening, Hospitalization)
  Sender: FDA-Public Use
  Company Number: CZ-AMGEN-CZECT2012082702

PATIENT
  Age: 69 Year
  Sex: Female
  Weight: 56 kg

DRUGS (13)
  1. ETANERCEPT [Suspect]
     Indication: RHEUMATOID ARTHRITIS
     Dosage: 50 MG, WEEKLY
     Route: 058
     Dates: start: 20120615
  2. INDAPAMIDE W/PERINDOPRIL [Concomitant]
     Indication: HYPERTENSION
     Dosage: 5 MG, 2X/DAY
     Route: 048
     Dates: start: 201110, end: 20121120
  3. INDAPAMIDE W/PERINDOPRIL [Concomitant]
     Indication: ATRIAL FIBRILLATION
  4. METOJECT [Concomitant]
     Indication: RHEUMATOID ARTHRITIS
     Dosage: 15 MG, WEEKLY
     Route: 058
     Dates: start: 20110415
  5. PREDNISONE [Concomitant]
     Indication: RHEUMATOID ARTHRITIS
     Dosage: 5 MG, 1X/DAY
     Route: 048
     Dates: start: 20050309
  6. IBUPROFEN [Concomitant]
     Indication: RHEUMATOID ARTHRITIS
     Dosage: 400 MG, AS NEEDED
     Dates: start: 20120111
  7. ACIDUM FOLICUM [Concomitant]
     Dosage: 10 MG, WEEKLY
     Route: 048
     Dates: start: 2004
  8. CALTRATE WITH VITAMIN D [Concomitant]
     Indication: OSTEOPOROSIS
     Dosage: 600 MG, 1X/DAY
     Route: 048
     Dates: start: 20050309
  9. VIGANTOL                           /00318501/ [Concomitant]
     Indication: OSTEOPOROSIS
     Dosage: 2 GTT, 1X/DAY
     Dates: start: 20050309
  10. BONVIVA [Concomitant]
     Indication: OSTEOPOROSIS
     Dosage: 150 MG, MONTHLY
     Route: 048
     Dates: start: 20120118
  11. ANOPYRIN [Concomitant]
     Dosage: 100 MG, UNK
     Dates: start: 1994
  12. EGILOK [Concomitant]
     Indication: HYPERTENSION
     Dosage: 25 MG, 1X/DAY
     Route: 048
     Dates: start: 2001
  13. ISOZID [Concomitant]
     Indication: LATENT TUBERCULOSIS
     Dosage: 300 MG, 1X/DAY
     Route: 048
     Dates: start: 201202

REACTIONS (1)
  - Atrial fibrillation [Recovered/Resolved]
